FAERS Safety Report 24008706 (Version 1)
Quarter: 2024Q2

REPORT INFORMATION
  Report Type: Report from Study
  Country: FR (occurrence: FR)
  Receive Date: 20240625
  Receipt Date: 20240625
  Transmission Date: 20240715
  Serious: Yes (Hospitalization)
  Sender: FDA-Public Use
  Company Number: FR-ROCHE-10000003224

PATIENT

DRUGS (11)
  1. RITUXIMAB [Interacting]
     Active Substance: RITUXIMAB
     Indication: Rheumatoid arthritis
     Route: 065
  2. RITUXIMAB [Interacting]
     Active Substance: RITUXIMAB
     Indication: Juvenile idiopathic arthritis
  3. MYCOPHENOLATE MOFETIL [Interacting]
     Active Substance: MYCOPHENOLATE MOFETIL
     Indication: Juvenile idiopathic arthritis
     Route: 048
  4. MYCOPHENOLATE MOFETIL [Interacting]
     Active Substance: MYCOPHENOLATE MOFETIL
     Indication: Rheumatoid arthritis
  5. METHOTREXATE [Interacting]
     Active Substance: METHOTREXATE
     Indication: Rheumatoid arthritis
     Route: 065
  6. METHOTREXATE [Interacting]
     Active Substance: METHOTREXATE
     Indication: Juvenile idiopathic arthritis
  7. CYCLOPHOSPHAMIDE [Interacting]
     Active Substance: CYCLOPHOSPHAMIDE
     Indication: Juvenile idiopathic arthritis
     Route: 065
  8. CYCLOPHOSPHAMIDE [Interacting]
     Active Substance: CYCLOPHOSPHAMIDE
     Indication: Rheumatoid arthritis
  9. CILGAVIMAB\TIXAGEVIMAB [Interacting]
     Active Substance: CILGAVIMAB\TIXAGEVIMAB
     Indication: COVID-19 prophylaxis
     Route: 065
  10. AZATHIOPRINE [Interacting]
     Active Substance: AZATHIOPRINE
     Indication: Rheumatoid arthritis
     Route: 065
  11. AZATHIOPRINE [Interacting]
     Active Substance: AZATHIOPRINE
     Indication: Juvenile idiopathic arthritis

REACTIONS (3)
  - COVID-19 [Unknown]
  - Vaccination failure [Unknown]
  - Vaccine interaction [Unknown]
